APPROVED DRUG PRODUCT: XHANCE
Active Ingredient: FLUTICASONE PROPIONATE
Strength: 0.093MG
Dosage Form/Route: SPRAY, METERED;NASAL
Application: N209022 | Product #001
Applicant: PARATEK PHARMACEUTICALS INC
Approved: Sep 18, 2017 | RLD: Yes | RS: Yes | Type: RX

PATENTS:
Patent 11554229 | Expires: Feb 23, 2036
Patent 12083270 | Expires: Apr 4, 2031

EXCLUSIVITY:
Code: I-940 | Date: Mar 15, 2027